FAERS Safety Report 8835757 (Version 78)
Quarter: 2018Q3

REPORT INFORMATION
  Report Type: Report from Study
  Country: CA (occurrence: CA)
  Receive Date: 20121011
  Receipt Date: 20180817
  Transmission Date: 20181010
  Serious: Yes (Hospitalization, Other)
  Sender: FDA-Public Use
  Company Number: PHHY2012CA069345

PATIENT
  Age: 63 Year
  Sex: Female
  Weight: 40 kg

DRUGS (23)
  1. PMS URSODIOL [Concomitant]
     Indication: PRODUCT USED FOR UNKNOWN INDICATION
     Route: 065
  2. NOVO?SPIRITON [Concomitant]
     Indication: PRODUCT USED FOR UNKNOWN INDICATION
     Route: 065
  3. SANDOSTATIN LAR DEPOT [Suspect]
     Active Substance: OCTREOTIDE ACETATE
     Indication: DIARRHOEA
     Dosage: 30 MG, QMO
     Route: 030
     Dates: start: 20120806
  4. RITUXIMAB. [Concomitant]
     Active Substance: RITUXIMAB
     Indication: LEUKAEMIA
     Dosage: UNK
     Route: 065
     Dates: start: 20140501
  5. DILAUDID [Concomitant]
     Active Substance: HYDROMORPHONE HYDROCHLORIDE
     Indication: PRODUCT USED FOR UNKNOWN INDICATION
     Dosage: 6 MG, QD
     Route: 065
  6. JURNISTA [Concomitant]
     Active Substance: HYDROMORPHONE HYDROCHLORIDE
     Indication: PRODUCT USED FOR UNKNOWN INDICATION
     Dosage: 6 MG, QD
     Route: 065
  7. GABAPENTIN. [Concomitant]
     Active Substance: GABAPENTIN
     Indication: PRODUCT USED FOR UNKNOWN INDICATION
     Route: 065
  8. CO ROSUVASTATIN [Concomitant]
     Active Substance: ROSUVASTATIN
     Indication: PRODUCT USED FOR UNKNOWN INDICATION
     Route: 065
  9. SANDOSTATIN [Suspect]
     Active Substance: OCTREOTIDE ACETATE
     Indication: DIARRHOEA
     Dosage: UNK UNK, TID
     Route: 058
     Dates: start: 20120711
  10. IMBRUVICA [Concomitant]
     Active Substance: IBRUTINIB
     Indication: PRODUCT USED FOR UNKNOWN INDICATION
     Dosage: 2 MG, QD
     Route: 065
  11. RITUXIMAB. [Concomitant]
     Active Substance: RITUXIMAB
     Dosage: UNK
     Route: 065
     Dates: start: 20140508
  12. APO PANTOPRAZOLE [Concomitant]
     Indication: PRODUCT USED FOR UNKNOWN INDICATION
     Route: 065
  13. SANDOSTATIN LAR DEPOT [Suspect]
     Active Substance: OCTREOTIDE ACETATE
     Dosage: 30 MG, Q3W (EVERY 3 WEEKS)
     Route: 030
     Dates: start: 20121116
  14. RITUXIMAB. [Concomitant]
     Active Substance: RITUXIMAB
     Dosage: UNK
     Route: 065
     Dates: start: 20140515
  15. HYDROMORPH CONTIN [Concomitant]
     Active Substance: HYDROMORPHONE
     Indication: PRODUCT USED FOR UNKNOWN INDICATION
     Dosage: 3 MG
     Route: 065
  16. HYDROMORPH CONTIN [Concomitant]
     Active Substance: HYDROMORPHONE
     Dosage: 4.5 MG
     Route: 065
  17. HYDROMORPH CONTIN [Concomitant]
     Active Substance: HYDROMORPHONE
     Dosage: 3 MG
     Route: 065
     Dates: start: 20141203
  18. DILAUDID [Concomitant]
     Active Substance: HYDROMORPHONE HYDROCHLORIDE
     Dosage: 4 MG, QD
     Route: 065
  19. JURNISTA [Concomitant]
     Active Substance: HYDROMORPHONE HYDROCHLORIDE
     Dosage: 4 MG, QD
     Route: 065
  20. VENLAFAXINE XR [Concomitant]
     Active Substance: VENLAFAXINE HYDROCHLORIDE
     Indication: PRODUCT USED FOR UNKNOWN INDICATION
     Route: 065
  21. JAMP ASS EC [Concomitant]
     Indication: PRODUCT USED FOR UNKNOWN INDICATION
     Route: 065
  22. APO LORAZEPAM [Concomitant]
     Active Substance: LORAZEPAM
     Indication: PRODUCT USED FOR UNKNOWN INDICATION
     Route: 065
  23. M CAL [Concomitant]
     Indication: PRODUCT USED FOR UNKNOWN INDICATION
     Route: 065

REACTIONS (64)
  - Bone marrow failure [Unknown]
  - Heart rate increased [Unknown]
  - Pain in extremity [Recovered/Resolved]
  - Stress [Not Recovered/Not Resolved]
  - Myalgia [Unknown]
  - Blood pressure increased [Unknown]
  - White blood cell count decreased [Unknown]
  - Weight decreased [Unknown]
  - Injection site mass [Unknown]
  - Injection site haemorrhage [Unknown]
  - Hypoglycaemia [Unknown]
  - Dyspepsia [Unknown]
  - Frequent bowel movements [Unknown]
  - Injection site pain [Recovering/Resolving]
  - Asthenia [Unknown]
  - Herpes zoster [Unknown]
  - Pain [Unknown]
  - Euphoric mood [Unknown]
  - Lymphadenitis [Unknown]
  - Gait disturbance [Unknown]
  - Syringe issue [Unknown]
  - Flatulence [Unknown]
  - Confusional state [Not Recovered/Not Resolved]
  - Abdominal pain upper [Recovered/Resolved]
  - Diarrhoea [Recovering/Resolving]
  - Haemoglobin decreased [Unknown]
  - Hypersomnia [Unknown]
  - Product use in unapproved indication [Unknown]
  - Injection site swelling [Unknown]
  - Streptococcal infection [Unknown]
  - Diarrhoea [Recovered/Resolved]
  - Pneumonia [Unknown]
  - Fall [Unknown]
  - Pallor [Unknown]
  - Lethargy [Unknown]
  - Neutrophil count decreased [Unknown]
  - Dental caries [Unknown]
  - Musculoskeletal pain [Unknown]
  - Tremor [Recovered/Resolved]
  - Myelodysplastic syndrome [Unknown]
  - Erythema [Unknown]
  - Contusion [Recovering/Resolving]
  - Underdose [Unknown]
  - Irritable bowel syndrome [Unknown]
  - Productive cough [Unknown]
  - Abdominal pain [Not Recovered/Not Resolved]
  - Tension [Unknown]
  - Head discomfort [Unknown]
  - Decreased appetite [Unknown]
  - Hip fracture [Unknown]
  - Blood pressure decreased [Unknown]
  - Loss of consciousness [Unknown]
  - Red blood cell count decreased [Unknown]
  - Pyrexia [Recovered/Resolved]
  - Blood iron decreased [Unknown]
  - Lung disorder [Unknown]
  - Fatigue [Unknown]
  - Gastrointestinal infection [Unknown]
  - Neoplasm malignant [Unknown]
  - Body temperature decreased [Unknown]
  - Somnolence [Unknown]
  - Inappropriate schedule of drug administration [Unknown]
  - Needle issue [Unknown]
  - Anxiety [Unknown]

NARRATIVE: CASE EVENT DATE: 20120711
